FAERS Safety Report 5942893-2 (Version None)
Quarter: 2008Q4

REPORT INFORMATION
  Report Type: 
  Country: None (occurrence: None)
  Receive Date: 20081106
  Receipt Date: 20081029
  Transmission Date: 20090506
  Serious: Yes (Other)
  Sender: FDA-Public Use
  Company Number: US-BRISTOL-MYERS SQUIBB COMPANY-14056923

PATIENT

DRUGS (3)
  1. DIDANOSINE [Suspect]
     Indication: HIV INFECTION
  2. LAMIVUDINE [Suspect]
  3. ZIDOVUDINE [Suspect]

REACTIONS (8)
  - ASCITES [None]
  - HYPERCOAGULATION [None]
  - NODULAR REGENERATIVE HYPERPLASIA [None]
  - PORTAL HYPERTENSION [None]
  - PORTAL VEIN THROMBOSIS [None]
  - PROTEIN S DEFICIENCY [None]
  - VARICES OESOPHAGEAL [None]
  - VARICOSE VEIN RUPTURED [None]
